FAERS Safety Report 4466347-8 (Version None)
Quarter: 2004Q4

REPORT INFORMATION
  Report Type: 
  Country: None (occurrence: None)
  Receive Date: 20041005
  Receipt Date: 20040922
  Transmission Date: 20050328
  Serious: Yes (Life-Threatening, Hospitalization)
  Sender: FDA-Public Use
  Company Number: ES-GLAXOSMITHKLINE-B0346795A

PATIENT
  Age: 1 Year
  Sex: Female

DRUGS (4)
  1. LAMICTAL [Suspect]
     Indication: EPILEPSY
     Dosage: 15MG PER DAY
     Route: 048
     Dates: start: 20040201, end: 20040920
  2. PHENOBARBITAL TAB [Concomitant]
     Indication: EPILEPSY
     Dosage: 12MG PER DAY
     Route: 048
     Dates: start: 20031101
  3. TOPIRMATE [Concomitant]
     Indication: EPILEPSY
     Dosage: 6.5MG PER DAY
     Route: 048
     Dates: start: 20040821
  4. CLOBAZAM [Concomitant]
     Indication: HYPERTONIA
     Dosage: 7.5MG PER DAY
     Route: 048
     Dates: start: 20040920

REACTIONS (4)
  - CONDITION AGGRAVATED [None]
  - HEPATIC FAILURE [None]
  - PYREXIA [None]
  - SEPSIS [None]
